FAERS Safety Report 24294387 (Version 2)
Quarter: 2024Q3

REPORT INFORMATION
  Report Type: Spontaneous
  Country: US (occurrence: US)
  Receive Date: 20240906
  Receipt Date: 20240923
  Transmission Date: 20241017
  Serious: No
  Sender: DAIICHI
  Company Number: US-DAIICHI SANKYO, INC.-DSU-2024-143887AA

PATIENT
  Sex: Male

DRUGS (2)
  1. TURALIO [Suspect]
     Active Substance: PEXIDARTINIB HYDROCHLORIDE
     Indication: Connective tissue neoplasm
     Dosage: 125 MG, BID
     Route: 048
     Dates: start: 20240828
  2. TURALIO [Suspect]
     Active Substance: PEXIDARTINIB HYDROCHLORIDE
     Indication: Soft tissue neoplasm

REACTIONS (5)
  - Sluggishness [Not Recovered/Not Resolved]
  - Brain fog [Not Recovered/Not Resolved]
  - Brain fog [Not Recovered/Not Resolved]
  - Pruritus [Recovering/Resolving]
  - Fatigue [Not Recovered/Not Resolved]
